FAERS Safety Report 18287373 (Version 1)
Quarter: 2020Q3

REPORT INFORMATION
  Report Type: Spontaneous
  Country: US (occurrence: US)
  Receive Date: 20200917
  Receipt Date: 20200917
  Transmission Date: 20201103
  Serious: No
  Sender: FDA-Public Use
  Company Number: None

PATIENT
  Age: 65 Year
  Sex: Female
  Weight: 5.9 kg

DRUGS (2)
  1. BENLYSTA [Suspect]
     Active Substance: BELIMUMAB
     Indication: PSORIASIS
  2. BENLYSTA [Suspect]
     Active Substance: BELIMUMAB
     Indication: MULTI-ORGAN DISORDER
     Route: 058
     Dates: start: 202002

REACTIONS (2)
  - Unevaluable event [None]
  - Hospitalisation [None]
